FAERS Safety Report 14602472 (Version 5)
Quarter: 2018Q2

REPORT INFORMATION
  Report Type: Spontaneous
  Country: US (occurrence: US)
  Receive Date: 20180306
  Receipt Date: 20180605
  Transmission Date: 20180711
  Serious: No
  Sender: FDA-Public Use
  Company Number: US-PFIZER INC-2018088170

PATIENT
  Sex: Female

DRUGS (2)
  1. METHOTREXATE SODIUM. [Suspect]
     Active Substance: METHOTREXATE SODIUM
     Dosage: UNK
     Dates: start: 2003, end: 2015
  2. METHOTREXATE SODIUM. [Suspect]
     Active Substance: METHOTREXATE SODIUM
     Dosage: UNK
     Route: 048
     Dates: start: 2001, end: 2014

REACTIONS (7)
  - Burning sensation [Unknown]
  - Alopecia [Unknown]
  - Pruritus [Unknown]
  - Skin lesion [Unknown]
  - Blood count abnormal [Unknown]
  - Anaemia [Unknown]
  - Drug hypersensitivity [Unknown]
